FAERS Safety Report 7180492-8 (Version None)
Quarter: 2010Q4

REPORT INFORMATION
  Report Type: 
  Country: None (occurrence: None)
  Receive Date: 20101221
  Receipt Date: 20101216
  Transmission Date: 20110411
  Serious: Yes (Hospitalization)
  Sender: FDA-Public Use
  Company Number: CHPA2010US19157

PATIENT
  Age: 59 Year
  Sex: Male

DRUGS (2)
  1. PREVACID 24 HR [Suspect]
     Dosage: UNK, UNK
     Route: 048
     Dates: start: 20100101, end: 20101201
  2. MULTI-VITAMINS [Concomitant]
     Route: 048

REACTIONS (2)
  - HIP FRACTURE [None]
  - INTENTIONAL DRUG MISUSE [None]
